FAERS Safety Report 10230325 (Version 1)
Quarter: 2014Q2

REPORT INFORMATION
  Report Type: Spontaneous
  Country: US (occurrence: US)
  Receive Date: 20140611
  Receipt Date: 20140611
  Transmission Date: 20141212
  Serious: Yes (Hospitalization)
  Sender: FDA-Public Use
  Company Number: US-SA-2014SA075280

PATIENT
  Age: 95 Year
  Sex: Male
  Weight: 98 kg

DRUGS (2)
  1. PLAVIX [Suspect]
     Indication: PRODUCT USED FOR UNKNOWN INDICATION
     Route: 065
  2. ACETYLSALICYLIC ACID [Concomitant]

REACTIONS (9)
  - Hernia repair [Unknown]
  - Hypoaesthesia [Unknown]
  - Pain [Unknown]
  - Skin wrinkling [Unknown]
  - Rash [Unknown]
  - Erythema [Unknown]
  - Asthenia [Unknown]
  - Paraesthesia [Unknown]
  - Drug dose omission [Unknown]
